FAERS Safety Report 8472135-8 (Version None)
Quarter: 2012Q2

REPORT INFORMATION
  Report Type: 
  Country: None (occurrence: None)
  Receive Date: 20120627
  Receipt Date: 20120614
  Transmission Date: 20120825
  Serious: Yes (Hospitalization)
  Sender: FDA-Public Use
  Company Number: FR-CELGENEUS-056-21880-12062189

PATIENT
  Sex: Male

DRUGS (5)
  1. DEXAMETHASONE [Suspect]
     Indication: MULTIPLE MYELOMA
     Route: 065
     Dates: start: 20120604
  2. DEXAMETHASONE [Suspect]
     Route: 065
     Dates: start: 20120608
  3. BORTEZOMIB [Suspect]
     Indication: MULTIPLE MYELOMA
     Route: 065
     Dates: start: 20120604
  4. BORTEZOMIB [Suspect]
     Route: 065
     Dates: start: 20120607
  5. REVLIMID [Suspect]
     Indication: MULTIPLE MYELOMA
     Route: 048
     Dates: start: 20120604

REACTIONS (3)
  - HYPOXIA [None]
  - LUNG DISORDER [None]
  - HYPERTHERMIA [None]
